FAERS Safety Report 6300667-7 (Version None)
Quarter: 2009Q3

REPORT INFORMATION
  Report Type: 
  Country: None (occurrence: None)
  Receive Date: 20090807
  Receipt Date: 20071221
  Transmission Date: 20100115
  Serious: Yes (Other)
  Sender: FDA-Public Use
  Company Number: US-ASTRAZENECA-2006UW27492

PATIENT
  Age: 48 Year
  Sex: Female
  Weight: 78 kg

DRUGS (30)
  1. SEROQUEL [Suspect]
     Indication: BIPOLAR DISORDER
     Dosage: 25-700 MG
     Route: 048
     Dates: start: 19991004
  2. SEROQUEL [Suspect]
     Indication: DEPRESSION
     Dosage: 25-700 MG
     Route: 048
     Dates: start: 19991004
  3. SEROQUEL [Suspect]
     Indication: ANXIETY
     Dosage: 25-700 MG
     Route: 048
     Dates: start: 19991004
  4. SEROQUEL [Suspect]
     Route: 048
     Dates: start: 20020103
  5. SEROQUEL [Suspect]
     Route: 048
     Dates: start: 20020103
  6. SEROQUEL [Suspect]
     Route: 048
     Dates: start: 20020103
  7. ZYPREXA [Suspect]
     Dosage: 2.5-5 MG
     Dates: start: 19990201, end: 19990622
  8. ABILIFY [Concomitant]
  9. GEODON [Concomitant]
     Dates: start: 20020104, end: 20020802
  10. RISPERDAL [Concomitant]
  11. ZOCOR [Concomitant]
     Indication: HYPERCHOLESTEROLAEMIA
     Dosage: 20-40 MG
     Dates: start: 20020501
  12. METFORMIN HYDROCHLORIDE [Concomitant]
     Dates: start: 20051105
  13. PREVACID [Concomitant]
     Route: 048
     Dates: start: 20040629
  14. ZETIA [Concomitant]
     Indication: HYPERCHOLESTEROLAEMIA
     Dates: start: 20040517
  15. LAMICTAL [Concomitant]
     Dosage: 25-125 MG
     Dates: start: 20051202
  16. WELLBUTRIN [Concomitant]
     Dosage: 100-300 MG
     Dates: start: 20010608
  17. KLONOPIN [Concomitant]
     Dosage: 0.5-1 MG
     Dates: start: 19990201
  18. EFFEXOR [Concomitant]
     Dosage: 37.5-425 MG
     Dates: start: 19990319
  19. TENORMIN [Concomitant]
     Indication: PALPITATIONS
     Dosage: 50-100 MG
     Dates: start: 19990319
  20. TENORMIN [Concomitant]
     Indication: TACHYCARDIA
     Dosage: 50-100 MG
     Dates: start: 19990319
  21. TENORMIN [Concomitant]
     Indication: HYPERTENSION
     Dosage: 50-100 MG
     Dates: start: 19990319
  22. LASIX [Concomitant]
     Indication: OEDEMA PERIPHERAL
     Dates: start: 19990513
  23. PRILOSEC [Concomitant]
     Indication: GASTROOESOPHAGEAL REFLUX DISEASE
     Dates: start: 19940101, end: 20040629
  24. PRILOSEC [Concomitant]
     Indication: HIATUS HERNIA
     Dates: start: 19940101, end: 20040629
  25. NEURONTIN [Concomitant]
     Indication: DEPRESSION
     Dosage: 300-1800 MG
     Dates: start: 20000404, end: 20040629
  26. OMEGA BRIGHT FISH OIL [Concomitant]
     Dates: start: 20021216
  27. CARTIA XT [Concomitant]
     Indication: HYPERTENSION
     Dosage: 120-240 MG
     Dates: start: 20021216
  28. LIPITOR [Concomitant]
     Indication: HYPERCHOLESTEROLAEMIA
     Dosage: 10-80 MG
     Dates: start: 19990323
  29. ZONEGRAN [Concomitant]
     Dosage: 100-200 MG
     Dates: start: 20040315
  30. PROTONIX [Concomitant]
     Dates: start: 20040629

REACTIONS (6)
  - BLOOD GLUCOSE ABNORMAL [None]
  - DIABETES MELLITUS [None]
  - DIABETIC NEUROPATHY [None]
  - GLUCOSE TOLERANCE IMPAIRED [None]
  - METABOLIC SYNDROME [None]
  - TYPE 2 DIABETES MELLITUS [None]
